FAERS Safety Report 9169978 (Version 1)
Quarter: 2013Q1

REPORT INFORMATION
  Report Type: Spontaneous
  Country: US (occurrence: US)
  Receive Date: 20130319
  Receipt Date: 20130319
  Transmission Date: 20140127
  Serious: No
  Sender: FDA-Public Use
  Company Number: US-BIOGENIDEC-2013BI023582

PATIENT
  Age: 46 Year
  Sex: Female

DRUGS (1)
  1. TYSABRI [Suspect]
     Indication: MULTIPLE SCLEROSIS
     Route: 042
     Dates: start: 20120517, end: 20121009

REACTIONS (3)
  - Premature menopause [Not Recovered/Not Resolved]
  - Tooth extraction [Recovered/Resolved with Sequelae]
  - Tooth repair [Recovered/Resolved with Sequelae]
